FAERS Safety Report 7438003-5 (Version None)
Quarter: 2011Q2

REPORT INFORMATION
  Report Type: 
  Country: None (occurrence: None)
  Receive Date: 20110426
  Receipt Date: 20110324
  Transmission Date: 20111010
  Serious: Yes (Other)
  Sender: FDA-Public Use
  Company Number: CA-JNJFOC-20110404922

PATIENT
  Sex: Female

DRUGS (5)
  1. PRILOSEC [Concomitant]
  2. INDOMETHACIN [Concomitant]
  3. REMICADE [Suspect]
     Indication: ANKYLOSING SPONDYLITIS
     Route: 042
  4. TYLENOL W/ CODEINE NO. 3 [Concomitant]
  5. VITAMIN D [Concomitant]

REACTIONS (1)
  - BREAST CANCER [None]
